FAERS Safety Report 11594393 (Version 2)
Quarter: 2015Q4

REPORT INFORMATION
  Report Type: Spontaneous
  Country: US (occurrence: US)
  Receive Date: 20151005
  Receipt Date: 20151102
  Transmission Date: 20160304
  Serious: Yes (Death)
  Sender: FDA-Public Use
  Company Number: US-PFIZER INC-2015319044

PATIENT
  Age: 64 Year
  Sex: Female
  Weight: 63.49 kg

DRUGS (7)
  1. MORPHINE [Concomitant]
     Active Substance: MORPHINE
     Dosage: 400 MG, DAILY (PER DAY)
     Dates: start: 201408, end: 20150814
  2. K-DUR [Concomitant]
     Active Substance: POTASSIUM CHLORIDE
     Dosage: UNK
     Dates: start: 201406, end: 20150814
  3. WARFARIN [Concomitant]
     Active Substance: WARFARIN
     Dosage: UNK
     Dates: start: 201210, end: 20150814
  4. OXYCODONE [Concomitant]
     Active Substance: OXYCODONE
     Dosage: 10 MG (10 OR 15 PILLS DAILY)
     Dates: start: 201308, end: 20150814
  5. LASIX [Concomitant]
     Active Substance: FUROSEMIDE
     Dosage: UNK
     Dates: start: 201402, end: 20150814
  6. SUTENT [Suspect]
     Active Substance: SUNITINIB MALATE
     Indication: THYMOMA MALIGNANT
     Dosage: 25 MG, 1X/DAY
     Dates: start: 201503, end: 201505
  7. KEPPRA [Concomitant]
     Active Substance: LEVETIRACETAM
     Dosage: UNK
     Dates: start: 201404, end: 20150814

REACTIONS (5)
  - Disease progression [Fatal]
  - Fluid retention [Unknown]
  - Product use issue [Unknown]
  - Thymoma malignant [Fatal]
  - Oral pain [Recovered/Resolved]
